FAERS Safety Report 17051867 (Version 1)
Quarter: 2019Q4

REPORT INFORMATION
  Report Type: Spontaneous
  Country: TR (occurrence: TR)
  Receive Date: 20191120
  Receipt Date: 20191120
  Transmission Date: 20200122
  Serious: Yes (Other)
  Sender: FDA-Public Use
  Company Number: NVSC2019TR039224

PATIENT

DRUGS (1)
  1. CLOBETASOL [Suspect]
     Active Substance: CLOBETASOL
     Indication: CUTANEOUS T-CELL LYMPHOMA
     Dosage: UNK
     Route: 061

REACTIONS (3)
  - Product use in unapproved indication [Unknown]
  - Colon cancer [Unknown]
  - Second primary malignancy [Unknown]
